FAERS Safety Report 22384140 (Version 1)
Quarter: 2023Q2

REPORT INFORMATION
  Report Type: Spontaneous
  Country: US (occurrence: US)
  Receive Date: 20230530
  Receipt Date: 20230530
  Transmission Date: 20230722
  Serious: Yes (Other)
  Sender: FDA-Public Use
  Company Number: US-PFIZER INC-PV202300093234

PATIENT
  Age: 15 Year
  Sex: Female

DRUGS (1)
  1. OXBRYTA [Suspect]
     Active Substance: VOXELOTOR
     Indication: Thalassaemia beta
     Dosage: UNK

REACTIONS (5)
  - Pulmonary hypertension [Unknown]
  - Sickle cell anaemia with crisis [Unknown]
  - Hypersplenism [Unknown]
  - Gastrointestinal disorder [Unknown]
  - Abdominal symptom [Unknown]
